FAERS Safety Report 10430700 (Version 1)
Quarter: 2014Q3

REPORT INFORMATION
  Report Type: Report from Study
  Country: US (occurrence: US)
  Receive Date: 20140904
  Receipt Date: 20140904
  Transmission Date: 20150326
  Serious: Yes (Other)
  Sender: FDA-Public Use
  Company Number: US-BAYER-2014-130457

PATIENT
  Age: 64 Year
  Sex: Male

DRUGS (3)
  1. SPIRONOLACTONE. [Concomitant]
     Active Substance: SPIRONOLACTONE
     Dosage: 25MG
  2. NEXAVAR [Suspect]
     Active Substance: SORAFENIB
     Indication: HEPATIC CANCER
     Dosage: 400 MG, BID (1 HOUR BEFORE OR 2 HOURS AFTER FOOD)
     Route: 048
     Dates: start: 20140814
  3. FUROSEMIDUM [FUROSEMIDE] [Concomitant]
     Dosage: 20MG

REACTIONS (10)
  - Insomnia [None]
  - Blister [None]
  - Urticaria [None]
  - Pruritus [None]
  - Abdominal pain upper [None]
  - Face oedema [None]
  - Aphagia [None]
  - Pneumothorax [None]
  - Decreased appetite [None]
  - Erythema [None]
